FAERS Safety Report 13701815 (Version 1)
Quarter: 2017Q2

REPORT INFORMATION
  Report Type: Spontaneous
  Country: US (occurrence: US)
  Receive Date: 20170629
  Receipt Date: 20170629
  Transmission Date: 20170830
  Serious: No
  Sender: FDA-Public Use
  Company Number: None

PATIENT
  Sex: Female

DRUGS (1)
  1. GENOTROPIN [Suspect]
     Active Substance: SOMATROPIN
     Indication: FOETAL ANTICONVULSANT SYNDROME
     Route: 058
     Dates: start: 201606

REACTIONS (3)
  - Erythema [None]
  - Arthralgia [None]
  - Oral herpes [None]
